FAERS Safety Report 15433779 (Version 1)
Quarter: 2018Q3

REPORT INFORMATION
  Report Type: Spontaneous
  Country: US (occurrence: US)
  Receive Date: 20180921
  Receipt Date: 20180921
  Transmission Date: 20181010
  Serious: Yes (Hospitalization)
  Sender: FDA-Public Use
  Company Number: None

PATIENT
  Age: 69 Year
  Sex: Male
  Weight: 66.22 kg

DRUGS (1)
  1. YESCARTA [Suspect]
     Active Substance: AXICABTAGENE CILOLEUCEL
     Indication: DIFFUSE LARGE B-CELL LYMPHOMA
     Dosage: ?          OTHER DOSE:2X10^6 PER KG MAX ;?
     Route: 042
     Dates: start: 20180806

REACTIONS (6)
  - Neurotoxicity [None]
  - Tremor [None]
  - Electroencephalogram abnormal [None]
  - Pancytopenia [None]
  - Hypotension [None]
  - Cognitive disorder [None]

NARRATIVE: CASE EVENT DATE: 20180806
